FAERS Safety Report 20384729 (Version 1)
Quarter: 2022Q1

REPORT INFORMATION
  Report Type: Report from Study
  Country: US (occurrence: None)
  Receive Date: 20220127
  Receipt Date: 20220127
  Transmission Date: 20220423
  Serious: Yes (Hospitalization)
  Sender: FDA-Public Use
  Company Number: US-ROCHE-1568284

PATIENT
  Age: 38 Year
  Sex: Female
  Weight: 140 kg

DRUGS (34)
  1. PLACEBO [Suspect]
     Active Substance: UNSPECIFIED INGREDIENT
     Indication: Relapsing-remitting multiple sclerosis
     Route: 042
     Dates: start: 20120614, end: 20120614
  2. PLACEBO [Suspect]
     Active Substance: UNSPECIFIED INGREDIENT
     Route: 042
     Dates: start: 20120628, end: 20120628
  3. PLACEBO [Suspect]
     Active Substance: UNSPECIFIED INGREDIENT
     Dosage: .
     Route: 042
     Dates: start: 20121129, end: 20121129
  4. PLACEBO [Suspect]
     Active Substance: UNSPECIFIED INGREDIENT
     Route: 042
     Dates: start: 20130517, end: 20130517
  5. PLACEBO [Suspect]
     Active Substance: UNSPECIFIED INGREDIENT
     Route: 042
     Dates: start: 20131101, end: 20131101
  6. INTERFERON BETA-1A [Suspect]
     Active Substance: INTERFERON BETA-1A
     Indication: Relapsing-remitting multiple sclerosis
     Dosage: FREQUENCY AS PER PROTOCOL.
     Route: 058
     Dates: start: 20120614
  7. INTERFERON BETA-1A [Suspect]
     Active Substance: INTERFERON BETA-1A
     Dosage: FREQUENCY AS PER PROTOCOL.?DURING WEEKS 3 AND 4: 22 MCG INJECTION 3 TIMES PER WEEK?FROM THE 5TH WEEK
     Route: 058
     Dates: end: 20140512
  8. OCRELIZUMAB [Suspect]
     Active Substance: OCRELIZUMAB
     Indication: Relapsing-remitting multiple sclerosis
     Dosage: FREQUENCY AS PER PROTOCOL: DUAL INFUSION (300MG EACH) FOR THE FIRST CYCLE OF OLE OCRELIZUMAB AND THE
     Route: 042
     Dates: start: 20140513
  9. OCRELIZUMAB [Suspect]
     Active Substance: OCRELIZUMAB
     Dosage: FREQUENCY AS PER PROTOCOL: DUAL INFUSION (300MG EACH) FOR THE FIRST CYCLE OF OLE OCRELIZUMAB AND THE
     Route: 042
     Dates: start: 20140527
  10. OCRELIZUMAB [Suspect]
     Active Substance: OCRELIZUMAB
     Dosage: FREQUENCY AS PER PROTOCOL: DUAL INFUSION (300MG EACH) FOR THE FIRST CYCLE OF OLE OCRELIZUMAB AND THE
     Route: 042
     Dates: start: 20141027
  11. OCRELIZUMAB [Suspect]
     Active Substance: OCRELIZUMAB
     Dosage: FREQUENCY AS PER PROTOCOL: DUAL INFUSION (300MG EACH) FOR THE FIRST CYCLE OF OLE OCRELIZUMAB AND THE
     Route: 042
     Dates: start: 20150414
  12. ACETAMINOPHEN [Concomitant]
     Active Substance: ACETAMINOPHEN
     Indication: Premedication
     Dosage: OTHER DOSES ON: 28/JUN/2012, 29/NOV/2012, 17/MAY/2013, 01/NOV/2013 (AS TYLENOL), 13/MAY/2014 (TWICE)
     Dates: start: 20120614
  13. DIPHENHYDRAMINE [Concomitant]
     Active Substance: DIPHENHYDRAMINE
     Indication: Premedication
     Dosage: OTHER DOSES ON: 28/JUN/2012, 29/NOV/2012, 17/MAY/2013, 01/NOV/2013, 13/MAY/2014 (BENADRYL, TWICE), 2
     Dates: start: 20120614
  14. METHYLPREDNISOLONE [Concomitant]
     Active Substance: METHYLPREDNISOLONE
     Indication: Premedication
     Dosage: OTHER DOSES ON: 28/JUN/2012, 29/NOV/2012, 17/MAY/2013, 01/NOV/2013, 13/MAY/2014, 27/MAY/2014, 27/OCT
     Dates: start: 20120614
  15. TEGRETOL [Concomitant]
     Active Substance: CARBAMAZEPINE
     Dates: start: 20120508, end: 201302
  16. IBUPROFEN [Concomitant]
     Active Substance: IBUPROFEN
     Dates: start: 20120625, end: 20120625
  17. IBUPROFEN [Concomitant]
     Active Substance: IBUPROFEN
     Dates: start: 20121204, end: 20121204
  18. IBUPROFEN [Concomitant]
     Active Substance: IBUPROFEN
     Dates: start: 20151214, end: 20151214
  19. IMITREX [Concomitant]
     Active Substance: SUMATRIPTAN SUCCINATE
     Dates: start: 20140715
  20. ATIVAN [Concomitant]
     Active Substance: LORAZEPAM
     Dates: start: 20140929, end: 20141002
  21. BUSPAR [Concomitant]
     Active Substance: BUSPIRONE HYDROCHLORIDE
     Dates: start: 20140930
  22. ZOLOFT [Concomitant]
     Active Substance: SERTRALINE HYDROCHLORIDE
     Dates: start: 20141014
  23. NAPROXEN [Concomitant]
     Active Substance: NAPROXEN
     Dates: start: 20120625, end: 201306
  24. PREDNISONE [Concomitant]
     Active Substance: PREDNISONE
     Dates: start: 20151210, end: 20151210
  25. GUAIFENESIN [Concomitant]
     Active Substance: GUAIFENESIN
     Dates: start: 20151214
  26. LEVOFLOXACIN [Concomitant]
     Active Substance: LEVOFLOXACIN
     Dates: start: 20151214, end: 20151216
  27. SODIUM CHLORIDE [Concomitant]
     Active Substance: SODIUM CHLORIDE
     Dates: start: 20151214, end: 20151214
  28. LEVAQUIN [Concomitant]
     Active Substance: LEVOFLOXACIN
     Dates: start: 20151217, end: 20151224
  29. ALBUTEROL\IPRATROPIUM [Concomitant]
     Active Substance: ALBUTEROL\IPRATROPIUM
     Dates: start: 20151209, end: 20151215
  30. POTASSIUM CHLORIDE [Concomitant]
     Active Substance: POTASSIUM CHLORIDE
     Dates: start: 20151214, end: 20151214
  31. FERROUS SULFATE [Concomitant]
     Active Substance: FERROUS SULFATE
     Dates: start: 20151217
  32. FOLIC ACID [Concomitant]
     Active Substance: FOLIC ACID
     Dates: start: 20151217
  33. ATORVASTATIN [Concomitant]
     Active Substance: ATORVASTATIN
     Dates: start: 20210319, end: 20210326
  34. SODIUM CHLORIDE [Concomitant]
     Active Substance: SODIUM CHLORIDE
     Dates: start: 20210319, end: 20210319

REACTIONS (1)
  - Splenic vein thrombosis [Recovered/Resolved]

NARRATIVE: CASE EVENT DATE: 20150419
